FAERS Safety Report 4639029-7 (Version None)
Quarter: 2005Q2

REPORT INFORMATION
  Report Type: 
  Country: None (occurrence: None)
  Receive Date: 20050419
  Receipt Date: 20050316
  Transmission Date: 20051028
  Serious: Yes (Other)
  Sender: FDA-Public Use
  Company Number: JP-ROCHE-399469

PATIENT
  Age: 71 Year
  Sex: Male

DRUGS (3)
  1. TAMIFLU [Suspect]
     Indication: INFLUENZA
     Route: 048
     Dates: start: 20050311, end: 20050314
  2. SENNOSIDE [Concomitant]
     Dosage: DRUG NAME REPORTED AS ^SENAN^
     Route: 048
  3. Q + P KOWA GOLD [Concomitant]
     Route: 048

REACTIONS (3)
  - HAEMODIALYSIS [None]
  - PLEURAL EFFUSION [None]
  - RENAL FAILURE ACUTE [None]
